FAERS Safety Report 10257946 (Version 1)
Quarter: 2014Q2

REPORT INFORMATION
  Report Type: Spontaneous
  Country: US (occurrence: US)
  Receive Date: 20140625
  Receipt Date: 20140625
  Transmission Date: 20141212
  Serious: No
  Sender: FDA-Public Use
  Company Number: US-PFIZER INC-2014171038

PATIENT
  Age: 71 Year
  Sex: Female
  Weight: 71.7 kg

DRUGS (3)
  1. GLIPIZIDE XL [Suspect]
     Indication: DIABETES MELLITUS
     Dosage: 10 MG, 2X/DAY
     Route: 048
     Dates: start: 201406
  2. LISINOPRIL [Concomitant]
     Indication: HYPERTENSION
     Dosage: 5 MG, 1X/DAY
  3. FUROSEMIDE [Concomitant]
     Indication: HYPERTENSION
     Dosage: 20 MG, 1X/DAY

REACTIONS (1)
  - Drug effect incomplete [Not Recovered/Not Resolved]
